FAERS Safety Report 11821113 (Version 1)
Quarter: 2015Q4

REPORT INFORMATION
  Report Type: Spontaneous
  Country: US (occurrence: US)
  Receive Date: 20151210
  Receipt Date: 20151210
  Transmission Date: 20160305
  Serious: No
  Sender: FDA-Public Use
  Company Number: US-JNJFOC-20150716675

PATIENT
  Age: 50 Year
  Sex: Female

DRUGS (22)
  1. KETOCONAZOLE. [Concomitant]
     Active Substance: KETOCONAZOLE
  2. FLEXERIL [Concomitant]
     Active Substance: CYCLOBENZAPRINE HYDROCHLORIDE
  3. FLONASE [Concomitant]
     Active Substance: FLUTICASONE PROPIONATE
  4. VORICONAZOLE. [Concomitant]
     Active Substance: VORICONAZOLE
  5. COSOPT [Concomitant]
     Active Substance: DORZOLAMIDE HYDROCHLORIDE\TIMOLOL MALEATE
  6. ZANTAC [Concomitant]
     Active Substance: RANITIDINE HYDROCHLORIDE
  7. BACTRIM [Concomitant]
     Active Substance: SULFAMETHOXAZOLE\TRIMETHOPRIM
  8. CLONAZEPAM. [Concomitant]
     Active Substance: CLONAZEPAM
  9. RESTASIS [Concomitant]
     Active Substance: CYCLOSPORINE
  10. PILOCARPINE. [Concomitant]
     Active Substance: PILOCARPINE
  11. LACTULOSE. [Concomitant]
     Active Substance: LACTULOSE
  12. NEURONTIN [Concomitant]
     Active Substance: GABAPENTIN
  13. LEVOTHROID [Concomitant]
     Active Substance: LEVOTHYROXINE SODIUM
  14. ADDERALL [Concomitant]
     Active Substance: AMPHETAMINE ASPARTATE\AMPHETAMINE SULFATE\DEXTROAMPHETAMINE SACCHARATE\DEXTROAMPHETAMINE SULFATE
  15. OXYCONTIN [Concomitant]
     Active Substance: OXYCODONE HYDROCHLORIDE
  16. IMBRUVICA [Suspect]
     Active Substance: IBRUTINIB
     Indication: CHRONIC LYMPHOCYTIC LEUKAEMIA
     Route: 048
     Dates: start: 20140205
  17. FENTORA [Concomitant]
     Active Substance: FENTANYL CITRATE
  18. RITALIN [Concomitant]
     Active Substance: METHYLPHENIDATE HYDROCHLORIDE
  19. VALTREX [Concomitant]
     Active Substance: VALACYCLOVIR HYDROCHLORIDE
  20. AMITIZA [Concomitant]
     Active Substance: LUBIPROSTONE
  21. MORPHINE [Concomitant]
     Active Substance: MORPHINE
  22. MIRALAX [Concomitant]
     Active Substance: POLYETHYLENE GLYCOL 3350

REACTIONS (4)
  - Pyrexia [Not Recovered/Not Resolved]
  - Pharyngeal oedema [Unknown]
  - Neck pain [Not Recovered/Not Resolved]
  - Local swelling [Not Recovered/Not Resolved]

NARRATIVE: CASE EVENT DATE: 20150608
